FAERS Safety Report 25894040 (Version 1)
Quarter: 2025Q4

REPORT INFORMATION
  Report Type: Spontaneous
  Country: US (occurrence: US)
  Receive Date: 20251008
  Receipt Date: 20251008
  Transmission Date: 20260118
  Serious: Yes (Other)
  Sender: COOPERSURGICAL
  Company Number: US-COOPERSURGICAL, INC.-2025CPS007143

PATIENT
  Sex: Female
  Weight: 53.968 kg

DRUGS (1)
  1. PARAGARD T 380A [Suspect]
     Active Substance: COPPER
     Indication: Contraception
     Dosage: UNK
     Route: 015
     Dates: start: 20180126, end: 20231229

REACTIONS (15)
  - Surgery [Recovered/Resolved]
  - Device breakage [Recovered/Resolved]
  - Foreign body in reproductive tract [Recovered/Resolved]
  - Complication of device removal [Recovered/Resolved]
  - Embedded device [Recovered/Resolved]
  - Device issue [Recovered/Resolved]
  - Coital bleeding [Unknown]
  - Procedural haemorrhage [Recovered/Resolved]
  - Emotional distress [Unknown]
  - Papilloma viral infection [Unknown]
  - Vaginal discharge [Unknown]
  - Muscle spasms [Recovering/Resolving]
  - Vaginal infection [Unknown]
  - Intermenstrual bleeding [Recovering/Resolving]
  - Dyspareunia [Unknown]

NARRATIVE: CASE EVENT DATE: 20180101
